FAERS Safety Report 20747432 (Version 1)
Quarter: 2022Q2

REPORT INFORMATION
  Report Type: Spontaneous
  Country: US (occurrence: US)
  Receive Date: 20220425
  Receipt Date: 20220425
  Transmission Date: 20220721
  Serious: No
  Sender: FDA-Public Use
  Company Number: US-SANOFI-01067214

PATIENT
  Age: 66 Year
  Sex: Female

DRUGS (1)
  1. APIDRA SOLOSTAR [Suspect]
     Active Substance: INSULIN GLULISINE
     Indication: Type 1 diabetes mellitus
     Dosage: 9 UNIT AM, 8 UNIT LUNCH TIME + 9 UNITS PM DRUG INTERVAL DOSAGE : THREE TIMES A DAY

REACTIONS (1)
  - Inappropriate schedule of product administration [Unknown]
